FAERS Safety Report 7757611 (Version 2)
Quarter: 2014Q1

REPORT INFORMATION
  Report Type: Report from Study
  Country: US (occurrence: US)
  Receive Date: 20110112
  Receipt Date: 20140210
  Transmission Date: 20141002
  Serious: Yes (Hospitalization)
  Sender: FDA-Public Use
  Company Number: US-ACTELION-A-NJ2010-43393

PATIENT
  Age: 73 Year
  Sex: Female

DRUGS (2)
  1. TRACLEER [Suspect]
     Indication: PULMONARY ARTERIAL HYPERTENSION
     Dosage: UNK
     Route: 048
     Dates: start: 20070518
  2. TADALAFIL [Concomitant]

REACTIONS (6)
  - Cellulitis [Unknown]
  - Pain in extremity [Unknown]
  - Disease complication [Recovering/Resolving]
  - Lymphoedema [Recovering/Resolving]
  - Swelling [Recovering/Resolving]
  - Laceration [Recovering/Resolving]
